FAERS Safety Report 9246629 (Version 2)
Quarter: 2013Q4

REPORT INFORMATION
  Report Type: Spontaneous
  Country: IT (occurrence: IT)
  Receive Date: 20130422
  Receipt Date: 20131003
  Transmission Date: 20140711
  Serious: Yes (Hospitalization)
  Sender: FDA-Public Use
  Company Number: IT-NICOBRDEVP-2013-06705

PATIENT
  Age: 64 Year
  Sex: Male

DRUGS (1)
  1. RAMIPRIL (UNKNOWN) [Suspect]
     Indication: SUICIDE ATTEMPT
     Dosage: 50 DF, SINGLE
     Route: 048
     Dates: start: 20130301, end: 20130301

REACTIONS (4)
  - Shock [Recovering/Resolving]
  - Drug abuse [Unknown]
  - Overdose [Unknown]
  - Blood creatinine increased [Recovering/Resolving]
